FAERS Safety Report 13565419 (Version 4)
Quarter: 2017Q3

REPORT INFORMATION
  Report Type: Report from Study
  Country: US (occurrence: US)
  Receive Date: 20170519
  Receipt Date: 20170712
  Transmission Date: 20171127
  Serious: Yes (Hospitalization)
  Sender: FDA-Public Use
  Company Number: US-ACADIA PHARMACEUTICALS INC.-ACA-2017-003510

PATIENT
  Age: 21 Year
  Sex: Male
  Weight: 54.9 kg

DRUGS (3)
  1. PIMAVANSERIN [Suspect]
     Active Substance: PIMAVANSERIN
     Dosage: 34 MG, QD
     Route: 048
     Dates: start: 20170419, end: 20170419
  2. RIFAMPIN. [Suspect]
     Active Substance: RIFAMPIN
     Indication: DRUG INTERACTION
     Dosage: 600 MG, QD
     Route: 048
     Dates: start: 20170412, end: 20170503
  3. PIMAVANSERIN [Suspect]
     Active Substance: PIMAVANSERIN
     Indication: DRUG INTERACTION
     Dosage: 34 MG, QD
     Route: 048
     Dates: start: 20170329, end: 20170329

REACTIONS (1)
  - Psychotic disorder [Recovered/Resolved]

NARRATIVE: CASE EVENT DATE: 20170509
